FAERS Safety Report 10628845 (Version 1)
Quarter: 2014Q4

REPORT INFORMATION
  Report Type: Spontaneous
  Country: US (occurrence: US)
  Receive Date: 20141205
  Receipt Date: 20141205
  Transmission Date: 20150529
  Serious: Yes (Other)
  Sender: FDA-Public Use
  Company Number: US-BRISTOL-MYERS SQUIBB COMPANY-21364310

PATIENT
  Age: 58 Year
  Sex: Female

DRUGS (3)
  1. ONGLYZA [Suspect]
     Active Substance: SAXAGLIPTIN HYDROCHLORIDE
     Route: 048
  2. METFORMIN [Concomitant]
     Active Substance: METFORMIN HYDROCHLORIDE
  3. GLIMEPIRIDE. [Concomitant]
     Active Substance: GLIMEPIRIDE

REACTIONS (1)
  - Pancreatitis [Unknown]
